FAERS Safety Report 15119516 (Version 10)
Quarter: 2020Q2

REPORT INFORMATION
  Report Type: Spontaneous
  Country: US (occurrence: US)
  Receive Date: 20180709
  Receipt Date: 20200526
  Transmission Date: 20200713
  Serious: Yes (Other)
  Sender: FDA-Public Use
  Company Number: US-PFIZER INC-2018272417

PATIENT
  Age: 64 Year
  Sex: Female
  Weight: 77 kg

DRUGS (5)
  1. IBRANCE [Suspect]
     Active Substance: PALBOCICLIB
     Indication: BREAST CANCER METASTATIC
     Dosage: 125 MG, 1X/DAY
     Route: 048
     Dates: start: 201803, end: 201803
  2. IBRANCE [Suspect]
     Active Substance: PALBOCICLIB
     Dosage: 125 MG, CYCLIC (125MG, 1 CAPSULE BY MOUTH FOR 21 DAYS THEN STOP 7 DAYS)
     Route: 048
     Dates: start: 20180401, end: 201804
  3. LETROZOLE. [Concomitant]
     Active Substance: LETROZOLE
     Indication: BREAST CANCER METASTATIC
     Dosage: UNK, 1X/DAY
     Dates: start: 201803, end: 2018
  4. IBRANCE [Suspect]
     Active Substance: PALBOCICLIB
     Dosage: 125 MG, CYCLIC (125MG, 1 CAPSULE BY MOUTH FOR 21 DAYS THEN STOP 7 DAYS)
     Route: 048
     Dates: start: 20180419
  5. LETROZOLE. [Concomitant]
     Active Substance: LETROZOLE
     Dosage: 2.5 MG, DAILY
     Dates: start: 20180419

REACTIONS (7)
  - Tongue coated [Recovered/Resolved]
  - Glossodynia [Recovered/Resolved]
  - Vitamin B12 decreased [Recovered/Resolved]
  - Gastric disorder [Recovered/Resolved]
  - Tongue disorder [Recovered/Resolved]
  - Alopecia [Not Recovered/Not Resolved]
  - Cancer pain [Unknown]

NARRATIVE: CASE EVENT DATE: 201806
